FAERS Safety Report 11221915 (Version 1)
Quarter: 2015Q2

REPORT INFORMATION
  Report Type: Spontaneous
  Country: US (occurrence: US)
  Receive Date: 20150626
  Receipt Date: 20150626
  Transmission Date: 20150821
  Serious: Yes (Other)
  Sender: FDA-Public Use
  Company Number: US-GLAXOSMITHKLINE-US2015088256

PATIENT
  Age: 34 Year
  Sex: Female

DRUGS (5)
  1. PRAZOSIN [Concomitant]
     Active Substance: PRAZOSIN
  2. NEXIUM [Concomitant]
     Active Substance: ESOMEPRAZOLE MAGNESIUM
  3. LAMICTAL [Suspect]
     Active Substance: LAMOTRIGINE
     Indication: AFFECTIVE DISORDER
     Dosage: 200 MG, QD
     Route: 048
     Dates: start: 201409
  4. ABILIFY [Concomitant]
     Active Substance: ARIPIPRAZOLE
  5. LEVOTHYROXINE [Concomitant]
     Active Substance: LEVOTHYROXINE

REACTIONS (3)
  - Drug dose omission [Unknown]
  - Seizure [Recovered/Resolved]
  - Emergency care examination [Recovered/Resolved]

NARRATIVE: CASE EVENT DATE: 20150522
